FAERS Safety Report 5409410-7 (Version None)
Quarter: 2007Q3

REPORT INFORMATION
  Report Type: 
  Country: None (occurrence: None)
  Receive Date: 20070809
  Receipt Date: 20070807
  Transmission Date: 20080115
  Serious: Yes (Other)
  Sender: FDA-Public Use
  Company Number: US-BRISTOL-MYERS SQUIBB COMPANY-13870738

PATIENT
  Sex: Female

DRUGS (1)
  1. REYATAZ [Suspect]

REACTIONS (3)
  - HYPOGLYCAEMIA [None]
  - INSULIN RESISTANCE [None]
  - WEIGHT INCREASED [None]
